FAERS Safety Report 24697630 (Version 1)
Quarter: 2024Q4

REPORT INFORMATION
  Report Type: Spontaneous
  Country: CA (occurrence: CA)
  Receive Date: 20241204
  Receipt Date: 20241204
  Transmission Date: 20250115
  Serious: Yes (Life-Threatening, Hospitalization)
  Sender: PFIZER
  Company Number: CA-PFIZER INC-202400315728

PATIENT
  Age: 4 Year
  Sex: Male
  Weight: 14 kg

DRUGS (3)
  1. CARBOPLATIN [Suspect]
     Active Substance: CARBOPLATIN
  2. CYCLOPHOSPHAMIDE [Suspect]
     Active Substance: CYCLOPHOSPHAMIDE
  3. ETOPOSIDE [Suspect]
     Active Substance: ETOPOSIDE

REACTIONS (1)
  - Febrile neutropenia [Recovered/Resolved]
